FAERS Safety Report 7071872-X (Version None)
Quarter: 2010Q4

REPORT INFORMATION
  Report Type: 
  Country: None (occurrence: None)
  Receive Date: 20101029
  Receipt Date: 20091023
  Transmission Date: 20110411
  Serious: No
  Sender: FDA-Public Use
  Company Number: A0813851A

PATIENT
  Age: 50 Year
  Sex: Female

DRUGS (4)
  1. ADVAIR DISKUS 100/50 [Suspect]
     Indication: PRODUCT USED FOR UNKNOWN INDICATION
     Route: 055
     Dates: start: 20090416
  2. SINGULAIR [Concomitant]
  3. ALLEGRA [Concomitant]
  4. FLONASE [Concomitant]

REACTIONS (2)
  - DYSPHONIA [None]
  - PHARYNGEAL DISORDER [None]
